FAERS Safety Report 10450791 (Version 1)
Quarter: 2014Q3

REPORT INFORMATION
  Report Type: Report from Study
  Country: JP (occurrence: JP)
  Receive Date: 20140912
  Receipt Date: 20140912
  Transmission Date: 20150326
  Serious: Yes (Other)
  Sender: FDA-Public Use
  Company Number: JP-BAYER-2014-135961

PATIENT
  Age: 79 Year
  Sex: Female
  Weight: 70 kg

DRUGS (3)
  1. STIVARGA [Suspect]
     Active Substance: REGORAFENIB
     Indication: COLON CANCER
     Dosage: SECOND CYCLE IS ON FOR 1 WEEK AND OFF FOR 3 WEEKS
     Route: 048
     Dates: start: 20140520, end: 20140818
  2. HIRUDOID [Concomitant]
     Active Substance: GLYCOSAMINOGLYCANS
     Indication: DRUG TOXICITY PROPHYLAXIS
     Dosage: UNK
     Route: 061
     Dates: start: 20140127, end: 20140302
  3. STIVARGA [Suspect]
     Active Substance: REGORAFENIB
     Indication: COLON CANCER
     Dosage: FIRST CYCLE IS ON FOR 1 WEEK AND OFF FOR 1 WEEK
     Route: 048
     Dates: start: 20140127, end: 20140428

REACTIONS (4)
  - Platelet count decreased [Recovered/Resolved]
  - Palmar-plantar erythrodysaesthesia syndrome [Not Recovered/Not Resolved]
  - Abdominal pain [Recovered/Resolved]
  - Hypothermia [Recovered/Resolved]

NARRATIVE: CASE EVENT DATE: 20140204
